FAERS Safety Report 5447490-3 (Version None)
Quarter: 2007Q3

REPORT INFORMATION
  Report Type: 
  Country: None (occurrence: None)
  Receive Date: 20070910
  Receipt Date: 20070831
  Transmission Date: 20080115
  Serious: Yes (Hospitalization)
  Sender: FDA-Public Use
  Company Number: A0679325A

PATIENT
  Age: 70 Year
  Sex: Female
  Weight: 76 kg

DRUGS (2)
  1. SERETIDE [Suspect]
     Indication: ASTHMA
     Route: 055
     Dates: start: 20061101
  2. PREDNISONE [Concomitant]

REACTIONS (2)
  - DRUG INEFFECTIVE [None]
  - PYREXIA [None]
